FAERS Safety Report 20297339 (Version 2)
Quarter: 2025Q2

REPORT INFORMATION
  Report Type: Spontaneous
  Country: US (occurrence: US)
  Receive Date: 20220105
  Receipt Date: 20250424
  Transmission Date: 20250717
  Serious: No
  Sender: ROCHE
  Company Number: US-ROCHE-2848167

PATIENT
  Sex: Male

DRUGS (2)
  1. HEMLIBRA [Suspect]
     Active Substance: EMICIZUMAB-KXWH
     Indication: Congenital coagulopathy
     Dosage: DOSAGE STRENGTH: 150 MG/ML
     Route: 058
     Dates: start: 20200811
  2. HEMLIBRA [Suspect]
     Active Substance: EMICIZUMAB-KXWH
     Dosage: DOSAGE STRENGTH: 105 MG/0.7ML
     Route: 058
     Dates: start: 202006

REACTIONS (2)
  - Haemorrhage [Unknown]
  - Epistaxis [Unknown]
